FAERS Safety Report 23602977 (Version 1)
Quarter: 2024Q1

REPORT INFORMATION
  Report Type: Spontaneous
  Country: DE (occurrence: DE)
  Receive Date: 20240306
  Receipt Date: 20240306
  Transmission Date: 20240409
  Serious: Yes (Other)
  Sender: FDA-Public Use
  Company Number: None

PATIENT
  Age: 5 Year
  Sex: Female

DRUGS (1)
  1. ESTRADIOL [Suspect]
     Active Substance: ESTRADIOL
     Indication: Product used for unknown indication
     Dosage: MOTHER REPORTED SELF-APPLICATION OF TOPICAL ESTRADIOL (CREAM)
     Route: 062

REACTIONS (3)
  - Exposure via skin contact [Recovering/Resolving]
  - Pseudoprecocious puberty [Recovering/Resolving]
  - Precocious puberty [Recovering/Resolving]
